FAERS Safety Report 12261516 (Version 2)
Quarter: 2019Q4

REPORT INFORMATION
  Report Type: Spontaneous
  Country: US (occurrence: US)
  Receive Date: 20160413
  Receipt Date: 20191025
  Transmission Date: 20200122
  Serious: Yes (Other)
  Sender: FDA-Public Use
  Company Number: US-PFIZER INC-2016204664

PATIENT
  Age: 69 Year
  Sex: Male

DRUGS (13)
  1. VIAGRA [Suspect]
     Active Substance: SILDENAFIL CITRATE
     Dosage: 100 MG, UNK (SEVERAL TIMES A MONTH)
     Route: 048
     Dates: start: 20071023, end: 200710
  2. VIAGRA [Suspect]
     Active Substance: SILDENAFIL CITRATE
     Dosage: 100 MG, UNK (SEVERAL TIMES A MONTH)
     Route: 048
     Dates: start: 20110702, end: 20110722
  3. VIAGRA [Suspect]
     Active Substance: SILDENAFIL CITRATE
     Dosage: 100 MG, UNK (SEVERAL TIMES A MONTH)
     Route: 048
     Dates: start: 20110208, end: 201102
  4. CIALIS [Suspect]
     Active Substance: TADALAFIL
     Indication: ERECTILE DYSFUNCTION
     Dosage: 10 MG, UNK (DISPENSE 3 TABLETS, ONCE A WEEK)
     Route: 048
     Dates: start: 20080624, end: 200806
  5. VIAGRA [Suspect]
     Active Substance: SILDENAFIL CITRATE
     Dosage: 100 MG, UNK (SEVERAL TIMES A MONTH)
     Route: 048
     Dates: start: 20070403, end: 20070605
  6. ANDROGEL [Concomitant]
     Active Substance: TESTOSTERONE
     Indication: ERECTILE DYSFUNCTION
     Dosage: UNK (1% 50 MG GEL PACK)
     Dates: start: 20070214, end: 20070515
  7. VIAGRA [Suspect]
     Active Substance: SILDENAFIL CITRATE
     Indication: ERECTILE DYSFUNCTION
     Dosage: UNK, REGULARLY
     Route: 048
     Dates: end: 2014
  8. VIAGRA [Suspect]
     Active Substance: SILDENAFIL CITRATE
     Dosage: 100 MG, UNK (SEVERAL TIMES A MONTH)
     Route: 048
     Dates: start: 20110722, end: 201107
  9. VIAGRA [Suspect]
     Active Substance: SILDENAFIL CITRATE
     Dosage: 100 MG, UNK (SEVERAL TIMES A MONTH)
     Route: 048
     Dates: start: 20080625, end: 20090302
  10. VIAGRA [Suspect]
     Active Substance: SILDENAFIL CITRATE
     Dosage: 100 MG, UNK (SEVERAL TIMES A MONTH)
     Route: 048
     Dates: start: 20090620, end: 20100502
  11. VIAGRA [Suspect]
     Active Substance: SILDENAFIL CITRATE
     Dosage: 100 MG, UNK (SEVERAL TIMES A MONTH)
     Route: 048
     Dates: start: 20100604, end: 20100813
  12. VIAGRA [Suspect]
     Active Substance: SILDENAFIL CITRATE
     Dosage: 100 MG, UNK (SEVERAL TIMES A MONTH)
     Route: 048
     Dates: start: 20120210, end: 201202
  13. LEVITRA [Suspect]
     Active Substance: VARDENAFIL HYDROCHLORIDE
     Dosage: 10 MG, UNK (DISCPENSE 3 TABLEST, ONCE A WEEK)
     Dates: start: 20080624, end: 200806

REACTIONS (4)
  - Emotional distress [Unknown]
  - Malignant melanoma stage II [Unknown]
  - Malignant melanoma in situ [Unknown]
  - Anxiety [Unknown]

NARRATIVE: CASE EVENT DATE: 20100831
